FAERS Safety Report 12444430 (Version 1)
Quarter: 2016Q2

REPORT INFORMATION
  Report Type: Spontaneous
  Country: US (occurrence: US)
  Receive Date: 20160607
  Receipt Date: 20160607
  Transmission Date: 20160815
  Serious: Yes (Other)
  Sender: FDA-Public Use
  Company Number: US-PRESTIGE BRANDS -1053442

PATIENT
  Age: 69 Year
  Sex: Female

DRUGS (1)
  1. MURINE TEARS FOR DRY EYES [Suspect]
     Active Substance: POLYVINYL ALCOHOL\POVIDONE
     Indication: DRY EYE
     Route: 047
     Dates: start: 201604, end: 201604

REACTIONS (11)
  - Blepharospasm [Unknown]
  - Eye disorder [Unknown]
  - Eye pain [Unknown]
  - Eyelid oedema [Unknown]
  - Ocular hyperaemia [Unknown]
  - Pigmentation disorder [Unknown]
  - Eyelid pain [Unknown]
  - Vision blurred [Unknown]
  - Lacrimation increased [Unknown]
  - Eye irritation [Unknown]
  - Eye colour change [Unknown]

NARRATIVE: CASE EVENT DATE: 201604
